FAERS Safety Report 6992076-2 (Version None)
Quarter: 2010Q3

REPORT INFORMATION
  Report Type: 
  Country: None (occurrence: None)
  Receive Date: 20100915
  Receipt Date: 20100915
  Transmission Date: 20110219
  Serious: Yes (Other)
  Sender: FDA-Public Use
  Company Number: None

PATIENT
  Age: 65 Year
  Sex: Male
  Weight: 106.5953 kg

DRUGS (2)
  1. PRAVASTATIN [Suspect]
     Indication: CEREBROVASCULAR ACCIDENT PROPHYLAXIS
     Dosage: 20MG EVERY OTHER DAY PO
     Route: 048
     Dates: start: 19980101, end: 20100801
  2. PRAVASTATIN [Suspect]
     Indication: HYPERCHOLESTEROLAEMIA
     Dosage: 20MG EVERY OTHER DAY PO
     Route: 048
     Dates: start: 19980101, end: 20100801

REACTIONS (3)
  - MUSCLE SPASMS [None]
  - MYALGIA [None]
  - PRODUCT SUBSTITUTION ISSUE [None]
